FAERS Safety Report 12386913 (Version 1)
Quarter: 2016Q2

REPORT INFORMATION
  Report Type: Spontaneous
  Country: DK (occurrence: DK)
  Receive Date: 20160519
  Receipt Date: 20160519
  Transmission Date: 20160815
  Serious: Yes (Hospitalization)
  Sender: FDA-Public Use
  Company Number: PHHY2016DK067576

PATIENT
  Sex: Female

DRUGS (1)
  1. ALNOK [Suspect]
     Active Substance: CETIRIZINE HYDROCHLORIDE
     Indication: SEASONAL ALLERGY
     Dosage: 10 MG, QD
     Route: 065
     Dates: end: 20160508

REACTIONS (1)
  - Ventricular tachycardia [Not Recovered/Not Resolved]
